FAERS Safety Report 24603711 (Version 2)
Quarter: 2024Q4

REPORT INFORMATION
  Report Type: Spontaneous
  Country: US (occurrence: US)
  Receive Date: 20241111
  Receipt Date: 20241121
  Transmission Date: 20250114
  Serious: No
  Sender: MERCK
  Company Number: US-009507513-2411USA001218

PATIENT
  Sex: Male

DRUGS (1)
  1. WINREVAIR [Suspect]
     Active Substance: SOTATERCEPT-CSRK
     Dosage: 1.2 MLS UNDER THE SKIN EVERY 3 WEEKS
     Route: 058
     Dates: start: 2024

REACTIONS (5)
  - Syringe issue [Unknown]
  - Product preparation issue [Unknown]
  - Product dose omission issue [Unknown]
  - Device connection issue [Unknown]
  - No adverse event [Unknown]

NARRATIVE: CASE EVENT DATE: 20241102
